FAERS Safety Report 20431511 (Version 6)
Quarter: 2022Q2

REPORT INFORMATION
  Report Type: Spontaneous
  Country: US (occurrence: US)
  Receive Date: 20220204
  Receipt Date: 20220509
  Transmission Date: 20220721
  Serious: Yes (Other)
  Sender: FDA-Public Use
  Company Number: US-PFIZER INC-202101864190

PATIENT
  Age: 67 Year
  Sex: Female

DRUGS (5)
  1. IBRANCE [Suspect]
     Active Substance: PALBOCICLIB
     Dosage: 125 MG
     Dates: start: 20211223, end: 20211223
  2. IBRANCE [Suspect]
     Active Substance: PALBOCICLIB
     Dosage: 125 MG
     Dates: start: 20211224
  3. IBRANCE [Suspect]
     Active Substance: PALBOCICLIB
     Dosage: 125 MG
     Dates: start: 20211225
  4. IBRANCE [Suspect]
     Active Substance: PALBOCICLIB
     Dosage: 125 MG
     Dates: start: 20211227
  5. IBRANCE [Suspect]
     Active Substance: PALBOCICLIB
     Dosage: 125 MG
     Dates: start: 20220105

REACTIONS (26)
  - Eye haemorrhage [Unknown]
  - Kidney infection [Recovered/Resolved]
  - Urinary tract infection [Recovered/Resolved]
  - Pain in extremity [Recovered/Resolved]
  - Hyperhidrosis [Recovered/Resolved]
  - Fatigue [Unknown]
  - Hypersomnia [Unknown]
  - Pyrexia [Unknown]
  - Headache [Unknown]
  - Flatulence [Unknown]
  - Night sweats [Unknown]
  - Blood glucose increased [Unknown]
  - Dizziness postural [Unknown]
  - Lymphocyte count increased [Unknown]
  - Dizziness [Unknown]
  - Contusion [Unknown]
  - Dry skin [Unknown]
  - Pain [Unknown]
  - Red blood cell morphology abnormal [Unknown]
  - Alopecia [Unknown]
  - Skin infection [Recovered/Resolved]
  - Feeling abnormal [Unknown]
  - Abdominal pain lower [Unknown]
  - Back pain [Unknown]
  - Oral pain [Unknown]
  - Skin lesion [Recovering/Resolving]

NARRATIVE: CASE EVENT DATE: 20211201
